FAERS Safety Report 24198899 (Version 1)
Quarter: 2024Q3

REPORT INFORMATION
  Report Type: Spontaneous
  Country: US (occurrence: US)
  Receive Date: 20240812
  Receipt Date: 20240812
  Transmission Date: 20241017
  Serious: Yes (Other)
  Sender: MICRO LABS
  Company Number: US-862174955-ML2024-04363

PATIENT
  Age: 63 Year
  Sex: Male

DRUGS (1)
  1. SEVELAMER [Suspect]
     Active Substance: SEVELAMER
     Indication: Hyperphosphataemia

REACTIONS (2)
  - Colitis ischaemic [Unknown]
  - Haematochezia [Unknown]
